FAERS Safety Report 4794392-1 (Version None)
Quarter: 2005Q4

REPORT INFORMATION
  Report Type: 
  Country: None (occurrence: None)
  Receive Date: 20051011
  Receipt Date: 20050927
  Transmission Date: 20060501
  Serious: Yes (Death)
  Sender: FDA-Public Use
  Company Number: FR-AMGEN-UK152373

PATIENT
  Age: 72 Year
  Sex: Female

DRUGS (1)
  1. ARANESP [Suspect]
     Indication: ANAEMIA OF MALIGNANT DISEASE
     Route: 065

REACTIONS (4)
  - DISEASE PROGRESSION [None]
  - LEUKOCYTOSIS [None]
  - LYMPHOMA [None]
  - MYELOPROLIFERATIVE DISORDER [None]
